FAERS Safety Report 5118630-0 (Version None)
Quarter: 2006Q4

REPORT INFORMATION
  Report Type: 
  Country: None (occurrence: None)
  Receive Date: 20061002
  Receipt Date: 20060921
  Transmission Date: 20070319
  Serious: Yes (Other)
  Sender: FDA-Public Use
  Company Number: IL-GLAXOSMITHKLINE-B0439186A

PATIENT
  Age: 20 Year
  Sex: Female

DRUGS (2)
  1. ALBUTEROL SPIROS [Suspect]
     Dosage: 300MG SINGLE DOSE
     Route: 048
  2. ACETAMINOPHEN [Suspect]
     Dosage: 30G SINGLE DOSE
     Route: 048

REACTIONS (6)
  - DRUG TOXICITY [None]
  - HYPERGLYCAEMIA [None]
  - HYPOKALAEMIA [None]
  - HYPOTENSION [None]
  - SINUS TACHYCARDIA [None]
  - TREMOR [None]
